FAERS Safety Report 18036919 (Version 2)
Quarter: 2022Q1

REPORT INFORMATION
  Report Type: Spontaneous
  Country: US (occurrence: US)
  Receive Date: 20200717
  Receipt Date: 20220118
  Transmission Date: 20220423
  Serious: Yes (Other)
  Sender: FDA-Public Use
  Company Number: US-GLAXOSMITHKLINE-US2020134196

PATIENT
  Sex: Male

DRUGS (10)
  1. RANITIDINE [Suspect]
     Active Substance: RANITIDINE
     Indication: Product used for unknown indication
     Dosage: UNK
     Route: 065
  2. ZANTAC [Suspect]
     Active Substance: RANITIDINE HYDROCHLORIDE
     Indication: Product used for unknown indication
     Dosage: UNK
     Route: 065
  3. ZANTAC [Suspect]
     Active Substance: RANITIDINE HYDROCHLORIDE
     Indication: Intestinal ulcer
     Dosage: TO BE SUPPLEMENTED, BID
     Route: 065
     Dates: start: 199501, end: 201201
  4. ZANTAC [Suspect]
     Active Substance: RANITIDINE HYDROCHLORIDE
     Indication: Crohn^s disease
  5. ZANTAC [Suspect]
     Active Substance: RANITIDINE HYDROCHLORIDE
     Indication: Intestinal ulcer
     Dosage: TO BE SUPPLEMENTED, BID
     Route: 065
     Dates: start: 199501, end: 201201
  6. ZANTAC [Suspect]
     Active Substance: RANITIDINE HYDROCHLORIDE
     Indication: Crohn^s disease
  7. RANITIDINE [Suspect]
     Active Substance: RANITIDINE
     Indication: Intestinal ulcer
     Dosage: TO BE SUPPLEMENTED, BID
     Route: 065
     Dates: start: 199701, end: 201201
  8. RANITIDINE [Suspect]
     Active Substance: RANITIDINE
     Indication: Crohn^s disease
  9. RANITIDINE [Suspect]
     Active Substance: RANITIDINE
     Indication: Intestinal ulcer
     Dosage: TO BE SUPPLEMENTED, BID
     Route: 065
     Dates: start: 199701, end: 201201
  10. RANITIDINE [Suspect]
     Active Substance: RANITIDINE
     Indication: Crohn^s disease

REACTIONS (1)
  - Colorectal cancer [Unknown]
